FAERS Safety Report 8853922 (Version 2)
Quarter: 2013Q2

REPORT INFORMATION
  Report Type: Spontaneous
  Country: US (occurrence: None)
  Receive Date: 20120426
  Receipt Date: 20120703
  Transmission Date: 20140414
  Serious: Yes (Disabling)
  Sender: FDA-Public Use
  Company Number: PHEH2011US012933

PATIENT
  Age: 26 Year
  Sex: Female
  Weight: 59 kg

DRUGS (4)
  1. GILENYA (FTY) CAPSULE, 0.5MG [Suspect]
     Indication: MULTIPLE SCLEROSIS
     Route: 048
     Dates: end: 20120307
  2. ADDERALL (AMFETAMINE ASPARTATE, AMFETAMINE SULFATE, DEXAMFETAMINE SACCHARATE, DEXAMFETAMINE SULFATE) [Concomitant]
  3. WELLBUTRIN (BUPROPION HYDROCHLORIDE) [Concomitant]
  4. MICROGESTIN (ETHINYLESTRADIOL, FERROUS FUMARATE, NORETHISTERONE ACETATE) [Concomitant]

REACTIONS (9)
  - Anxiety [None]
  - Nervousness [None]
  - Dry mouth [None]
  - Heart rate increased [None]
  - Headache [None]
  - Dyspnoea [None]
  - Nausea [None]
  - Abdominal discomfort [None]
  - Fatigue [None]
